FAERS Safety Report 8116532-9 (Version None)
Quarter: 2011Q4

REPORT INFORMATION
  Report Type: 
  Country: None (occurrence: None)
  Receive Date: 20111227
  Receipt Date: 20110927
  Transmission Date: 20120403
  Serious: No
  Sender: FDA-Public Use
  Company Number: PHEH2011US03389

PATIENT
  Age: 38 Year
  Sex: Female
  Weight: 145 kg

DRUGS (2)
  1. LYRICA [Concomitant]
  2. GILENYA [Suspect]
     Indication: MULTIPLE SCLEROSIS
     Dosage: 0.5 MG, DAILY, ORAL
     Route: 048

REACTIONS (3)
  - FEELING COLD [None]
  - MULTIPLE SCLEROSIS RELAPSE [None]
  - ALOPECIA [None]
